FAERS Safety Report 7766403-2 (Version None)
Quarter: 2011Q3

REPORT INFORMATION
  Report Type: 
  Country: None (occurrence: None)
  Receive Date: 20110922
  Receipt Date: 20110913
  Transmission Date: 20111222
  Serious: No
  Sender: FDA-Public Use
  Company Number: US-BIOGENIDEC-2011BI035325

PATIENT
  Age: 43 Year
  Sex: Female

DRUGS (4)
  1. AVONEX [Concomitant]
     Route: 030
     Dates: start: 20030101
  2. AVONEX [Concomitant]
     Indication: MULTIPLE SCLEROSIS
     Route: 030
  3. TYSABRI [Suspect]
     Indication: MULTIPLE SCLEROSIS
     Route: 042
     Dates: start: 20101229
  4. TYSABRI [Suspect]
     Route: 042
     Dates: start: 20110601

REACTIONS (1)
  - URINARY TRACT INFECTION [None]
